FAERS Safety Report 12134549 (Version 1)
Quarter: 2016Q1

REPORT INFORMATION
  Report Type: Report from Study
  Country: GR (occurrence: GR)
  Receive Date: 20160301
  Receipt Date: 20160301
  Transmission Date: 20160526
  Serious: Yes (Hospitalization)
  Sender: FDA-Public Use
  Company Number: GR-ABBVIE-16P-066-1568440-00

PATIENT
  Age: 57 Year
  Sex: Male

DRUGS (1)
  1. DUODOPA [Suspect]
     Active Substance: CARBIDOPA\LEVODOPA
     Indication: PARKINSON^S DISEASE
     Dosage: MORNING DOSE: 8.3ML, MORNING DOSE: 8.3ML, EXTRA DOSE: 1ML, CONTINUOUS RATE: 3ML/H
     Route: 050
     Dates: start: 2012

REACTIONS (3)
  - Dyspnoea [Unknown]
  - Influenza [Recovering/Resolving]
  - Respiratory tract infection [Recovering/Resolving]

NARRATIVE: CASE EVENT DATE: 20160221
